FAERS Safety Report 13154856 (Version 2)
Quarter: 2017Q3

REPORT INFORMATION
  Report Type: Report from Study
  Country: US (occurrence: US)
  Receive Date: 20170126
  Receipt Date: 20170726
  Transmission Date: 20171127
  Serious: No
  Sender: FDA-Public Use
  Company Number: US-AMGEN-USASL2016145201

PATIENT
  Age: 67 Year
  Sex: Male

DRUGS (1)
  1. KYPROLIS [Suspect]
     Active Substance: CARFILZOMIB
     Indication: PLASMA CELL MYELOMA
     Dosage: UNK  D1,2,8,9,15,16 Q 28 DAY
     Route: 065

REACTIONS (4)
  - Balance disorder [Unknown]
  - Fatigue [Unknown]
  - Cognitive disorder [Unknown]
  - Neuropathy peripheral [Unknown]
